FAERS Safety Report 24250773 (Version 1)
Quarter: 2024Q3

REPORT INFORMATION
  Report Type: Spontaneous
  Country: US (occurrence: US)
  Receive Date: 20240826
  Receipt Date: 20240826
  Transmission Date: 20241017
  Serious: No
  Sender: MEDEXUS PHARMA
  Company Number: US-MEDEXUS PHARMA, INC.-2024MED00303

PATIENT
  Sex: Male

DRUGS (4)
  1. RASUVO [Suspect]
     Active Substance: METHOTREXATE SODIUM
     Indication: Rheumatoid arthritis
     Dosage: 20 MG, 1X/WEEK ON WEDNESDAY TO THIGH
     Dates: start: 2024
  2. HYDROXYCHLOROQUINE [Concomitant]
     Active Substance: HYDROXYCHLOROQUINE
     Indication: Rheumatoid arthritis
     Dosage: 400 MG, 1X/DAY
  3. COLCHICINE [Concomitant]
     Active Substance: COLCHICINE
     Indication: Rheumatoid arthritis
     Dosage: 0.6 MG, 1X/DAY
  4. UNSPECIFIED INGREDIENT [Concomitant]
     Active Substance: UNSPECIFIED INGREDIENT

REACTIONS (6)
  - Abdominal discomfort [Not Recovered/Not Resolved]
  - Exposure via skin contact [Recovered/Resolved]
  - Device leakage [Recovered/Resolved]
  - Wrong technique in product usage process [Recovered/Resolved]
  - Inappropriate schedule of product administration [Unknown]
  - Device defective [Recovered/Resolved]

NARRATIVE: CASE EVENT DATE: 20240101
